FAERS Safety Report 15786048 (Version 1)
Quarter: 2019Q1

REPORT INFORMATION
  Report Type: Spontaneous
  Country: US (occurrence: US)
  Receive Date: 20190102
  Receipt Date: 20190102
  Transmission Date: 20190417
  Serious: No
  Sender: FDA-Public Use
  Company Number: None

PATIENT
  Age: 17 Year
  Sex: Male
  Weight: 122 kg

DRUGS (1)
  1. ISOVUE [Suspect]
     Active Substance: IOPAMIDOL

REACTIONS (4)
  - Contrast media allergy [None]
  - Nasal congestion [None]
  - Urticaria [None]
  - Sneezing [None]

NARRATIVE: CASE EVENT DATE: 20181220
